FAERS Safety Report 16050026 (Version 1)
Quarter: 2019Q1

REPORT INFORMATION
  Report Type: Spontaneous
  Country: IT (occurrence: IT)
  Receive Date: 20190308
  Receipt Date: 20190308
  Transmission Date: 20190418
  Serious: Yes (Other)
  Sender: FDA-Public Use
  Company Number: IT-ACCORD-111286

PATIENT
  Age: 54 Year
  Sex: Male
  Weight: 66 kg

DRUGS (5)
  1. FLUOROURACIL. [Suspect]
     Active Substance: FLUOROURACIL
     Indication: RECTAL CANCER
     Route: 042
     Dates: start: 20180417, end: 20180615
  2. FERRO GRAD C [Concomitant]
     Route: 048
  3. OXALIPLATIN ACCORD [Suspect]
     Active Substance: OXALIPLATIN
     Indication: RECTAL CANCER
     Route: 042
     Dates: start: 20180417, end: 20180613
  4. FOLIC ACID. [Concomitant]
     Active Substance: FOLIC ACID
     Route: 048
  5. SODIUM LEVOFOLINATE MEDAC [Suspect]
     Active Substance: LEVOLEUCOVORIN DISODIUM
     Indication: RECTAL CANCER
     Route: 042
     Dates: start: 20180417, end: 20180613

REACTIONS (2)
  - Chest pain [Recovered/Resolved]
  - Chest discomfort [Recovered/Resolved]

NARRATIVE: CASE EVENT DATE: 20180615
